FAERS Safety Report 10570839 (Version 4)
Quarter: 2017Q4

REPORT INFORMATION
  Report Type: Spontaneous
  Country: US (occurrence: US)
  Receive Date: 20141107
  Receipt Date: 20171206
  Transmission Date: 20180320
  Serious: Yes (Disabling, Other)
  Sender: FDA-Public Use
  Company Number: US-009507513-1411USA000614

PATIENT
  Sex: Female
  Weight: 72.56 kg

DRUGS (3)
  1. FOSAMAX [Suspect]
     Active Substance: ALENDRONATE SODIUM
     Dosage: 70 MG, QW
     Route: 048
     Dates: start: 20060706
  2. FOSAMAX [Suspect]
     Active Substance: ALENDRONATE SODIUM
     Indication: OSTEOPOROSIS
     Dosage: 70 MG, QW
     Route: 048
     Dates: end: 20060503
  3. FOSAMAX PLUS D [Suspect]
     Active Substance: ALENDRONATE SODIUM\CHOLECALCIFEROL
     Indication: OSTEOPOROSIS
     Dosage: 70 MG, QW
     Route: 048
     Dates: start: 200702, end: 200810

REACTIONS (20)
  - Surgery [Unknown]
  - Gastrooesophageal reflux disease [Unknown]
  - Hip fracture [Unknown]
  - Anxiety [Unknown]
  - Tendon disorder [Unknown]
  - Synovial cyst removal [Unknown]
  - Osteoporosis [Unknown]
  - Neuropathy peripheral [Unknown]
  - Bursa disorder [Unknown]
  - Helicobacter gastritis [Unknown]
  - Femur fracture [Unknown]
  - Spinal fracture [Unknown]
  - Dysphagia [Unknown]
  - Hip fracture [Unknown]
  - Endodontic procedure [Unknown]
  - Dental implantation [Unknown]
  - Compression fracture [Unknown]
  - Hyperlipidaemia [Unknown]
  - Forearm fracture [Unknown]
  - Urinary tract infection [Recovered/Resolved]

NARRATIVE: CASE EVENT DATE: 2001
